FAERS Safety Report 24759488 (Version 1)
Quarter: 2024Q4

REPORT INFORMATION
  Report Type: Spontaneous
  Country: US (occurrence: US)
  Receive Date: 20241220
  Receipt Date: 20241220
  Transmission Date: 20250115
  Serious: No
  Sender: BRAEBURN PHARMACEUTICALS
  Company Number: US-BRAEBURN-US-BRA-24-001052

PATIENT
  Sex: Female
  Weight: 66.213 kg

DRUGS (2)
  1. BRIXADI [Suspect]
     Active Substance: BUPRENORPHINE
     Indication: Drug dependence
     Dosage: 8 MILLIGRAM, WEEKLY
     Route: 058
  2. BRIXADI [Suspect]
     Active Substance: BUPRENORPHINE
     Indication: Substance-induced mood disorder

REACTIONS (9)
  - Nonspecific reaction [Unknown]
  - Somnolence [Unknown]
  - Hyperhidrosis [Unknown]
  - Visual impairment [Unknown]
  - Disturbance in attention [Unknown]
  - Dry mouth [Unknown]
  - Miosis [Unknown]
  - Headache [Unknown]
  - Anxiety [Unknown]
